FAERS Safety Report 15647310 (Version 2)
Quarter: 2018Q4

REPORT INFORMATION
  Report Type: Spontaneous
  Country: US (occurrence: US)
  Receive Date: 20181122
  Receipt Date: 20181206
  Transmission Date: 20190205
  Serious: No
  Sender: FDA-Public Use
  Company Number: US-ASTRAZENECA-2018SF46858

PATIENT
  Age: 25329 Day
  Sex: Male
  Weight: 86.6 kg

DRUGS (2)
  1. BYDUREON BCISE [Suspect]
     Active Substance: EXENATIDE
     Indication: TYPE 2 DIABETES MELLITUS
     Route: 058
     Dates: start: 201806
  2. LANTUS [Concomitant]
     Active Substance: INSULIN GLARGINE
     Indication: TYPE 2 DIABETES MELLITUS
     Dosage: 20USP UNITS TWO TIMES A DAY
     Route: 058

REACTIONS (7)
  - Visual impairment [Recovering/Resolving]
  - Injection site haemorrhage [Recovered/Resolved]
  - Injection site pain [Recovered/Resolved]
  - Device malfunction [Unknown]
  - Injection site scab [Not Recovered/Not Resolved]
  - Diabetes mellitus inadequate control [Unknown]
  - Needle issue [Unknown]

NARRATIVE: CASE EVENT DATE: 20180828
